FAERS Safety Report 9233330 (Version 4)
Quarter: 2014Q3

REPORT INFORMATION
  Report Type: Spontaneous
  Country: US (occurrence: US)
  Receive Date: 20130416
  Receipt Date: 20140918
  Transmission Date: 20150326
  Serious: Yes (Congenital Anomaly, Other)
  Sender: FDA-Public Use
  Company Number: US-PFIZER INC-2013117454

PATIENT
  Sex: Female
  Weight: 2.12 kg

DRUGS (19)
  1. EFFEXOR [Suspect]
     Active Substance: VENLAFAXINE HYDROCHLORIDE
     Dosage: 225 MG, 1X/DAY
     Route: 064
     Dates: start: 20040930
  2. NORMODYNE [Concomitant]
     Active Substance: LABETALOL HYDROCHLORIDE
     Dosage: 200 MG, 2X/DAY
     Route: 064
     Dates: start: 20051021
  3. BICITRA [Concomitant]
     Active Substance: CITRIC ACID, 1-STEARYL ESTER\SODIUM CITRATE
     Dosage: UNK, AS NEEDED
     Route: 064
     Dates: start: 20051023
  4. PHENERGAN [Concomitant]
     Active Substance: PROMETHAZINE HYDROCHLORIDE
     Indication: VOMITING
  5. CELESTONE SOLUSPAN [Concomitant]
     Active Substance: BETAMETHASONE ACETATE\BETAMETHASONE SODIUM PHOSPHATE
     Dosage: 12 MG, 1X/DAY
     Route: 064
     Dates: start: 20051020
  6. PHENERGAN [Concomitant]
     Active Substance: PROMETHAZINE HYDROCHLORIDE
     Indication: NAUSEA
     Dosage: 25 MG, 4X/DAY (EVERY 6 HOURS) AS NEEDED
     Route: 064
     Dates: start: 20050930
  7. PRENATAL VITAMINS [Concomitant]
     Active Substance: VITAMINS
     Dosage: UNK, 1X/DAY
     Route: 064
     Dates: start: 20050930
  8. AMBIEN [Concomitant]
     Active Substance: ZOLPIDEM TARTRATE
     Dosage: 5 MG, 1X/DAY (EVERY NIGHT) AS NEEDED
     Route: 064
     Dates: start: 20051021
  9. DULCOLAX [Concomitant]
     Active Substance: BISACODYL OR DOCUSATE SODIUM
     Dosage: 20 MG (10MG TWO TABLETS), UNK
     Route: 064
     Dates: start: 20051021
  10. MICRONASE [Concomitant]
     Active Substance: GLYBURIDE
     Dosage: 5 MG, 1X/DAY (EVERY MORNING)
     Route: 064
     Dates: start: 20051021
  11. EFFEXOR XR [Concomitant]
     Active Substance: VENLAFAXINE HYDROCHLORIDE
     Dosage: 25 MG, 1X/DAY
     Route: 064
     Dates: start: 20050414
  12. EFFEXOR [Suspect]
     Active Substance: VENLAFAXINE HYDROCHLORIDE
     Indication: DEPRESSION
     Dosage: UNK
     Route: 064
     Dates: start: 1999
  13. TERAZOL 3 [Concomitant]
     Active Substance: TERCONAZOLE
     Dosage: UNK, 1X/DAY
     Route: 064
     Dates: start: 20051022, end: 20051024
  14. EFFEXOR XR [Concomitant]
     Active Substance: VENLAFAXINE HYDROCHLORIDE
     Dosage: 75 MG, 1X/DAY
     Route: 064
     Dates: start: 20050510
  15. EFFEXOR [Suspect]
     Active Substance: VENLAFAXINE HYDROCHLORIDE
     Dosage: 150 MG, 1X/DAY
     Route: 064
     Dates: start: 20040301
  16. TYLENOL [Concomitant]
     Active Substance: ACETAMINOPHEN
     Indication: NAUSEA
     Dosage: UNK
     Route: 064
     Dates: start: 20050930
  17. BENADRYL [Concomitant]
     Active Substance: DIPHENHYDRAMINE HYDROCHLORIDE
     Indication: PRURITUS
     Dosage: 25 MG, 4X/DAY(EVERY 6 HOURS) AS NEEDED
     Route: 064
     Dates: start: 20051021
  18. ANCEF [Concomitant]
     Active Substance: CEFAZOLIN SODIUM
     Dosage: 1 G, UNK
     Route: 064
     Dates: start: 20051021
  19. GLYBURIDE. [Concomitant]
     Active Substance: GLYBURIDE
     Dosage: 5 MG, 1X/DAY
     Route: 064
     Dates: start: 20051021

REACTIONS (6)
  - Maternal exposure during pregnancy [Unknown]
  - Reflux nephropathy [Unknown]
  - Atrial septal defect [Unknown]
  - Premature baby [Unknown]
  - Eustachian tube dysfunction [Unknown]
  - Pyelonephritis chronic [Unknown]

NARRATIVE: CASE EVENT DATE: 20051024
